FAERS Safety Report 5655529-5 (Version None)
Quarter: 2008Q1

REPORT INFORMATION
  Report Type: 
  Country: None (occurrence: None)
  Receive Date: 20080307
  Receipt Date: 20080226
  Transmission Date: 20080703
  Serious: Yes (Other)
  Sender: FDA-Public Use
  Company Number: JP-SANOFI-SYNTHELABO-A01200802534

PATIENT
  Age: 74 Year

DRUGS (4)
  1. PROPOFOL [Concomitant]
     Indication: DRUG USE FOR UNKNOWN INDICATION
     Dosage: DRIP INFUSION
     Route: 065
     Dates: start: 20080223
  2. MORPHINE HCL ELIXIR [Concomitant]
     Indication: DRUG USE FOR UNKNOWN INDICATION
     Dosage: DRIP INFUSION
     Route: 065
     Dates: start: 20080223, end: 20080201
  3. LUVOX [Suspect]
     Indication: DRUG USE FOR UNKNOWN INDICATION
     Dosage: UNK
     Route: 048
  4. MYSLEE [Suspect]
     Indication: DRUG USE FOR UNKNOWN INDICATION
     Dosage: UNK
     Route: 048

REACTIONS (1)
  - DELAYED RECOVERY FROM ANAESTHESIA [None]
